FAERS Safety Report 21740617 (Version 1)
Quarter: 2022Q4

REPORT INFORMATION
  Report Type: Spontaneous
  Country: US (occurrence: None)
  Receive Date: 20221215
  Receipt Date: 20221215
  Transmission Date: 20230113
  Serious: Yes (Hospitalization)
  Sender: FDA-Public Use
  Company Number: None

PATIENT
  Age: 62 Year
  Sex: Female
  Weight: 99.11 kg

DRUGS (15)
  1. LENALIDOMIDE [Suspect]
     Active Substance: LENALIDOMIDE
     Indication: Plasma cell myeloma
     Dosage: OTHER FREQUENCY : 21D ON 7D OFF;?
  2. ACYCLOVIR [Concomitant]
     Active Substance: ACYCLOVIR
  3. BACTRIM DS [Concomitant]
  4. CALCIUM CARBONATE [Concomitant]
     Active Substance: CALCIUM CARBONATE
  5. DEXAMETHASONE [Concomitant]
     Active Substance: DEXAMETHASONE
  6. ELIQUIS [Concomitant]
     Active Substance: APIXABAN
  7. FAMOTIDINE [Concomitant]
     Active Substance: FAMOTIDINE
  8. LEVOTHYROXINE [Concomitant]
     Active Substance: LEVOTHYROXINE
  9. LORAZEPAM [Concomitant]
     Active Substance: LORAZEPAM
  10. MAGNESIUM [Concomitant]
     Active Substance: MAGNESIUM
  11. ONDANSETRON [Concomitant]
     Active Substance: ONDANSETRON
  12. PANTOPRAZOLE [Concomitant]
     Active Substance: PANTOPRAZOLE
  13. POTASSIUM CITRATE [Concomitant]
     Active Substance: POTASSIUM CITRATE
  14. PROCHLORPERAZINE [Concomitant]
     Active Substance: PROCHLORPERAZINE
  15. VITAMIN D3 [Concomitant]
     Active Substance: CHOLECALCIFEROL

REACTIONS (4)
  - Diarrhoea [None]
  - Urinary tract infection [None]
  - Confusional state [None]
  - Therapy interrupted [None]
